FAERS Safety Report 8503348-4 (Version None)
Quarter: 2012Q3

REPORT INFORMATION
  Report Type: 
  Country: None (occurrence: None)
  Receive Date: 20120702
  Receipt Date: 20120618
  Transmission Date: 20120928
  Serious: Yes (Other)
  Sender: FDA-Public Use
  Company Number: JP-2012-15462

PATIENT
  Age: 79 Year
  Sex: Male
  Weight: 62 kg

DRUGS (16)
  1. ANCARON (AMIODARONE HYDROHCLORIDE) [Concomitant]
  2. LANSOPRAZOLE [Concomitant]
  3. PREDOPA (DOPAMINE HYDROCHLORIDE) [Concomitant]
  4. SAMSCA [Suspect]
     Indication: FLUID RETENTION
     Dosage: 7.5 MG MILLIGRAM(S), QAM, ORAL 15 MG MILLIGRAM(S), QAM, ORAL
     Route: 048
     Dates: start: 20120328
  5. SAMSCA [Suspect]
     Indication: FLUID RETENTION
     Dosage: 7.5 MG MILLIGRAM(S), QAM, ORAL 15 MG MILLIGRAM(S), QAM, ORAL
     Route: 048
     Dates: start: 20120323, end: 20120327
  6. WARFARIN SODIUM [Concomitant]
  7. LASISX (FUROSEMIDE) [Concomitant]
  8. HANP (CARPERITIDE) [Concomitant]
  9. TORSEMIDE [Suspect]
     Indication: CARDIAC FAILURE
     Dosage: 4 MG MILIGRAM(S), DAILY DOSE, ORAL 8 MG MILLIGRAM(S), DAILY DOSE, ORAL
     Route: 048
     Dates: start: 20120327, end: 20120605
  10. TORSEMIDE [Suspect]
     Indication: CARDIAC FAILURE
     Dosage: 4 MG MILIGRAM(S), DAILY DOSE, ORAL 8 MG MILLIGRAM(S), DAILY DOSE, ORAL
     Route: 048
     Dates: start: 20120606
  11. TORSEMIDE [Suspect]
     Indication: CARDIAC FAILURE
     Dosage: 4 MG MILIGRAM(S), DAILY DOSE, ORAL 8 MG MILLIGRAM(S), DAILY DOSE, ORAL
     Route: 048
     Dates: start: 20120323, end: 20120326
  12. ALLOPURINOL [Concomitant]
  13. DOBUTREX [Concomitant]
  14. DIART (AZOSEMIDE) [Concomitant]
  15. LIVALO [Concomitant]
  16. METHYCOBAL (MECOBALAMIN) [Concomitant]

REACTIONS (1)
  - BLOOD UREA INCREASED [None]
